FAERS Safety Report 17220467 (Version 1)
Quarter: 2019Q4

REPORT INFORMATION
  Report Type: Spontaneous
  Country: JP (occurrence: JP)
  Receive Date: 20191231
  Receipt Date: 20191231
  Transmission Date: 20200122
  Serious: Yes (Death, Life-Threatening, Hospitalization, Other)
  Sender: FDA-Public Use
  Company Number: JP-BAYER-2019-216551

PATIENT
  Age: 65 Year
  Sex: Female
  Weight: 45.1 kg

DRUGS (8)
  1. STIVARGA [Suspect]
     Active Substance: REGORAFENIB
     Indication: COLORECTAL CANCER RECURRENT
     Dosage: DAILY DOSE 3 DF, 3 WEEKS ON 1 WEEK OFF
     Route: 048
     Dates: start: 20190705, end: 20190823
  2. LYRICA [Concomitant]
     Active Substance: PREGABALIN
     Dosage: DAILY DOSE 75 MG
     Route: 048
     Dates: start: 20170922
  3. TRAMAL [Concomitant]
     Active Substance: TRAMADOL
     Dosage: DAILY DOSE 75 MG
     Route: 048
     Dates: start: 20190315
  4. DENOTAS [Concomitant]
     Active Substance: CALCIUM CARBONATE\CHOLECALCIFEROL\MAGNESIUM CARBONATE
     Dosage: DAILY DOSE 2 DF
     Route: 048
     Dates: start: 20180302
  5. LOXOPROFEN [Concomitant]
     Active Substance: LOXOPROFEN
     Dosage: DAILY DOSE 180 MG
     Route: 048
     Dates: start: 20180302
  6. LANSOPRAZOLE. [Concomitant]
     Active Substance: LANSOPRAZOLE
     Dosage: DAILY DOSE 15 MG
     Route: 048
     Dates: start: 20180302
  7. MAGMITT [Concomitant]
     Active Substance: MAGNESIUM OXIDE
     Dosage: DAILY DOSE 750 MG
     Route: 048
     Dates: start: 20170804
  8. REBAMIPIDE [Concomitant]
     Active Substance: REBAMIPIDE
     Dosage: DAILY DOSE 300 MG
     Route: 048
     Dates: start: 20180302

REACTIONS (22)
  - Jaundice [Fatal]
  - Platelet count decreased [Fatal]
  - Off label use [None]
  - Alanine aminotransferase increased [Fatal]
  - Drug-induced liver injury [Fatal]
  - Malaise [Fatal]
  - Vomiting [Fatal]
  - Pneumothorax spontaneous [Fatal]
  - Aspartate aminotransferase increased [Fatal]
  - Colorectal cancer recurrent [Fatal]
  - Acute hepatic failure [Fatal]
  - Eating disorder [Fatal]
  - Pyrexia [None]
  - Delirium [Fatal]
  - Dyspnoea [Fatal]
  - Atypical mycobacterial infection [None]
  - Blood bilirubin increased [Fatal]
  - Performance status decreased [Fatal]
  - Hepatic encephalopathy [Fatal]
  - C-reactive protein increased [None]
  - Nausea [Fatal]
  - Melaena [Fatal]

NARRATIVE: CASE EVENT DATE: 20190830
